FAERS Safety Report 5473293-X (Version None)
Quarter: 2007Q3

REPORT INFORMATION
  Report Type: 
  Country: None (occurrence: None)
  Receive Date: 20070927
  Receipt Date: 20070914
  Transmission Date: 20080115
  Serious: Yes (Disabling)
  Sender: FDA-Public Use
  Company Number: OSCN-NO-0709S-0358

PATIENT
  Age: 70 Year
  Sex: Female
  Weight: 68 kg

DRUGS (6)
  1. OMNISCAN [Suspect]
     Indication: DRUG USE FOR UNKNOWN INDICATION
     Dosage: SEE IMAGE
     Route: 042
     Dates: start: 20040414, end: 20040414
  2. OMNISCAN [Suspect]
     Indication: DRUG USE FOR UNKNOWN INDICATION
     Dosage: SEE IMAGE
     Route: 042
     Dates: start: 20040428, end: 20040428
  3. OMNISCAN [Suspect]
     Indication: DRUG USE FOR UNKNOWN INDICATION
     Dosage: SEE IMAGE
     Route: 042
     Dates: start: 20040505, end: 20040505
  4. CICLOSPORIN [Concomitant]
  5. AZATHIOPRINE [Concomitant]
  6. PREDNISOLONE [Concomitant]

REACTIONS (16)
  - ARTERIOSCLEROSIS [None]
  - CARDIAC DISORDER [None]
  - CARDIAC VALVE DISEASE [None]
  - CHRONIC ALLOGRAFT NEPHROPATHY [None]
  - GLOMERULONEPHRITIS [None]
  - HAEMODIALYSIS [None]
  - HAEMORRHAGIC CYST [None]
  - HEPATIC CYST [None]
  - HEPATOMEGALY [None]
  - INTERSTITIAL LUNG DISEASE [None]
  - KIDNEY ENLARGEMENT [None]
  - KIDNEY FIBROSIS [None]
  - NEPHROGENIC SYSTEMIC FIBROSIS [None]
  - PULMONARY OEDEMA [None]
  - RENAL CYST [None]
  - TRANSPLANT FAILURE [None]
